FAERS Safety Report 5600973-5 (Version None)
Quarter: 2008Q1

REPORT INFORMATION
  Report Type: 
  Country: None (occurrence: None)
  Receive Date: 20080118
  Receipt Date: 20080104
  Transmission Date: 20080703
  Serious: Yes (Death)
  Sender: FDA-Public Use
  Company Number: 2008000996

PATIENT
  Age: 23 Year
  Sex: Female

DRUGS (3)
  1. PSEUDOEPHEDRINE HCL [Suspect]
     Dosage: ORAL
     Route: 048
  2. ACE INHIBITOR NOS (ACE  INHIBITOR NOS) [Suspect]
     Dosage: ORAL
     Route: 048
  3. ACETAMINOPHEN/ ASPIRIN/ CAFFEINE (ACETYLSALICYLIC ACID, CAFFEINE, PARA [Suspect]
     Dosage: ORAL
     Route: 048

REACTIONS (2)
  - COMPLETED SUICIDE [None]
  - DRUG TOXICITY [None]
